FAERS Safety Report 8034614-7 (Version None)
Quarter: 2012Q1

REPORT INFORMATION
  Report Type: 
  Country: None (occurrence: None)
  Receive Date: 20120110
  Receipt Date: 20120104
  Transmission Date: 20120608
  Serious: Yes (Hospitalization)
  Sender: FDA-Public Use
  Company Number: US-B.I. PHARMACEUTICALS,INC./RIDGEFIELD-2012-BP-00226BP

PATIENT
  Age: 38 Year
  Sex: Male

DRUGS (2)
  1. ZANTAC 150 [Suspect]
     Indication: DYSPEPSIA
     Dosage: 300 MG
     Route: 048
     Dates: start: 20111201
  2. ZANTAC 150 [Suspect]

REACTIONS (5)
  - ANXIETY [None]
  - TREMOR [None]
  - NERVOUSNESS [None]
  - DECREASED APPETITE [None]
  - HYPERHIDROSIS [None]
